FAERS Safety Report 9050719 (Version 2)
Quarter: 2013Q2

REPORT INFORMATION
  Report Type: Report from Study
  Country: JP (occurrence: JP)
  Receive Date: 20130205
  Receipt Date: 20130517
  Transmission Date: 20140414
  Serious: Yes (Hospitalization)
  Sender: FDA-Public Use
  Company Number: JP-009507513-1302JPN000521

PATIENT
  Age: 68 Year
  Sex: Male
  Weight: 81 kg

DRUGS (13)
  1. PEGINTRON [Suspect]
     Indication: CHRONIC HEPATITIS C
     Dosage: 120 MICROGRAM, QW
     Route: 058
     Dates: start: 20120801, end: 20120828
  2. PEGINTRON [Suspect]
     Dosage: 1 MICROGRAM PER KILOGRAM, QW
     Route: 058
     Dates: start: 20120905, end: 20121121
  3. REBETOL [Suspect]
     Indication: CHRONIC HEPATITIS C
     Dosage: 800 MG, QD
     Route: 048
     Dates: start: 20120801, end: 20120904
  4. REBETOL [Suspect]
     Dosage: 600 MG, QD
     Route: 048
     Dates: start: 20120905, end: 20121127
  5. TELAVIC [Suspect]
     Indication: CHRONIC HEPATITIS C
     Dosage: 1500MG, QD
     Route: 048
     Dates: start: 20120801, end: 20121023
  6. URSO [Concomitant]
     Indication: CHRONIC HEPATITIS C
     Dosage: 600 MG, QD FORMULATIO:POR
     Route: 048
     Dates: end: 20120829
  7. SHAKUYAKU-KANZO-TO [Concomitant]
     Indication: MUSCLE SPASMS
     Dosage: 7.5 G, QD
     Route: 048
  8. SHAKUYAKU-KANZO-TO [Concomitant]
     Indication: CHRONIC HEPATITIS C
  9. MAGMITT [Concomitant]
     Indication: CONSTIPATION
     Dosage: 2 G, QD FORMULATIO: POR
     Route: 048
  10. YODEL S [Concomitant]
     Indication: CONSTIPATION
     Dosage: 80 MG/DAY,  PRN FORMULATION :POR
     Route: 048
  11. AMLODIN (AMLODIPINE BESYLATE) [Concomitant]
     Indication: HYPERTENSION
     Dosage: 5 MG, QD FORMULATION :POR
     Route: 048
  12. RHYTHMY [Concomitant]
     Indication: INSOMNIA
     Dosage: 2 MG/DAY, PRN FORMULATION:POR
     Route: 048
  13. RHYTHMY [Concomitant]
     Dosage: 2 MG, QD FORMULATION:POR
     Route: 048

REACTIONS (1)
  - Hepatic cancer [Not Recovered/Not Resolved]
